FAERS Safety Report 9603698 (Version 2)
Quarter: 2013Q4

REPORT INFORMATION
  Report Type: Spontaneous
  Country: US (occurrence: US)
  Receive Date: 20131007
  Receipt Date: 20131205
  Transmission Date: 20140711
  Serious: Yes (Other)
  Sender: FDA-Public Use
  Company Number: US-TEVA-436355USA

PATIENT
  Age: 75 Year
  Sex: Female
  Weight: 59.02 kg

DRUGS (5)
  1. MONTELUKAST [Suspect]
     Indication: ASTHMA
     Route: 048
     Dates: start: 201301, end: 201309
  2. MONTELUKAST [Suspect]
     Indication: BRONCHITIS
  3. OMEPRAZOLE [Concomitant]
     Dosage: AM
     Route: 048
  4. ERGOCALCIFEROL [Concomitant]
     Dosage: AM
     Route: 048
  5. CALCIUM [Concomitant]
     Dosage: AM
     Route: 048

REACTIONS (8)
  - Choking [Recovered/Resolved]
  - Increased upper airway secretion [Recovered/Resolved]
  - Syncope [Unknown]
  - Nasopharyngitis [Recovered/Resolved]
  - Cough [Unknown]
  - Insomnia [Recovered/Resolved]
  - Stress [Recovered/Resolved]
  - Suspected counterfeit product [Unknown]
